FAERS Safety Report 10288974 (Version 1)
Quarter: 2014Q3

REPORT INFORMATION
  Report Type: Spontaneous
  Country: US (occurrence: US)
  Receive Date: 20140709
  Receipt Date: 20140709
  Transmission Date: 20150326
  Serious: Yes (Hospitalization, Other)
  Sender: FDA-Public Use
  Company Number: US-MERCK-1407USA002810

PATIENT
  Age: 46 Year
  Sex: Male

DRUGS (10)
  1. JANUVIA [Suspect]
     Active Substance: SITAGLIPTIN PHOSPHATE
     Indication: DIABETES MELLITUS
     Dosage: 50 MG, BID
     Route: 048
     Dates: start: 2013, end: 20140627
  2. CRESTOR [Concomitant]
     Active Substance: ROSUVASTATIN CALCIUM
  3. TRILIPIX [Concomitant]
     Active Substance: FENOFIBRIC ACID
  4. AMARYL [Concomitant]
     Active Substance: GLIMEPIRIDE
  5. TEGRETOL [Concomitant]
     Active Substance: CARBAMAZEPINE
  6. PHENERGAN (DIBROMPROPAMIDINE ISETHIONATE (+) PROMETHAZINE) [Concomitant]
  7. LYRICA [Concomitant]
     Active Substance: PREGABALIN
  8. LOVAZA [Concomitant]
     Active Substance: OMEGA-3-ACID ETHYL ESTERS
  9. NEXIUM [Concomitant]
     Active Substance: ESOMEPRAZOLE MAGNESIUM
     Route: 048
  10. ASPIRIN. [Concomitant]
     Active Substance: ASPIRIN

REACTIONS (5)
  - Drug administration error [Unknown]
  - Cerebrovascular accident [Recovering/Resolving]
  - Heart rate irregular [Recovering/Resolving]
  - Hypertension [Recovering/Resolving]
  - Pancreatitis [Recovering/Resolving]

NARRATIVE: CASE EVENT DATE: 20140624
